FAERS Safety Report 9404523 (Version 1)
Quarter: 2013Q3

REPORT INFORMATION
  Report Type: Spontaneous
  Country: US (occurrence: None)
  Receive Date: 20130715
  Receipt Date: 20130715
  Transmission Date: 20140515
  Serious: Yes (Other)
  Sender: FDA-Public Use
  Company Number: 2013AP006568

PATIENT
  Age: 58 Year
  Sex: Male

DRUGS (1)
  1. ROPINIROLE HYDROCHLORIDE [Suspect]
     Indication: PARKINSON^S DISEASE

REACTIONS (5)
  - Impulse-control disorder [None]
  - Gambling [None]
  - Alcohol use [None]
  - Depression [None]
  - Drug abuse [None]
